FAERS Safety Report 5325962-X (Version None)
Quarter: 2007Q2

REPORT INFORMATION
  Report Type: 
  Country: None (occurrence: None)
  Receive Date: 20070516
  Receipt Date: 20070501
  Transmission Date: 20071010
  Serious: No
  Sender: FDA-Public Use
  Company Number: A0649465A

PATIENT

DRUGS (1)
  1. EPZICOM [Suspect]
     Indication: HIV INFECTION
     Route: 048

REACTIONS (1)
  - HYPERSENSITIVITY [None]
